FAERS Safety Report 11140283 (Version 1)
Quarter: 2015Q2

REPORT INFORMATION
  Report Type: Spontaneous
  Country: JP (occurrence: JP)
  Receive Date: 20150527
  Receipt Date: 20150527
  Transmission Date: 20150821
  Serious: Yes (Life-Threatening, Other)
  Sender: FDA-Public Use
  Company Number: JP-ACTAVIS-2015-10702

PATIENT
  Age: 69 Year
  Sex: Male
  Weight: 63 kg

DRUGS (10)
  1. LEUCOVORIN                         /00566702/ [Concomitant]
     Active Substance: LEUCOVORIN
     Indication: METASTASES TO LIVER
  2. DEXAMETHASONE. [Concomitant]
     Active Substance: DEXAMETHASONE
     Indication: PRODUCT USED FOR UNKNOWN INDICATION
     Dosage: 6.6 MG, TOTAL
     Route: 042
  3. GRANISETRON [Concomitant]
     Active Substance: GRANISETRON
     Indication: PRODUCT USED FOR UNKNOWN INDICATION
     Dosage: 3 MG, TOTAL
     Route: 042
  4. LEUCOVORIN                         /00566702/ [Concomitant]
     Active Substance: LEUCOVORIN
     Indication: METASTASES TO LUNG
     Dosage: 200 MG/M2, CYCLICAL, 6 COURSES
     Route: 042
  5. FLUOROURACIL 5 FU [Concomitant]
     Active Substance: FLUOROURACIL
     Indication: METASTASES TO LUNG
     Dosage: 2400 MG/M2, CYCLICAL, 6 COURSES
     Route: 041
  6. FLUOROURACIL 5 FU [Concomitant]
     Active Substance: FLUOROURACIL
     Indication: METASTASES TO LIVER
     Dosage: 400 MG/M2, CYCLICAL, 6 COURSES
     Route: 042
  7. OXALIPLATIN (UNKNOWN) [Suspect]
     Active Substance: OXALIPLATIN
     Indication: METASTASES TO LIVER
     Dosage: 85 MG/M2, CYCLICAL, 7 COURSES
     Route: 042
  8. OXALIPLATIN (UNKNOWN) [Suspect]
     Active Substance: OXALIPLATIN
     Indication: METASTASES TO LUNG
  9. BEVACIZUMAB [Concomitant]
     Active Substance: BEVACIZUMAB
     Indication: METASTASES TO LUNG
     Dosage: 5 MG/KG, CYCLICAL, 6 COURSES
     Route: 042
  10. BEVACIZUMAB [Concomitant]
     Active Substance: BEVACIZUMAB
     Indication: METASTASES TO LIVER

REACTIONS (2)
  - Cardio-respiratory arrest [Recovered/Resolved]
  - Anaphylactic shock [Recovered/Resolved]
